FAERS Safety Report 25719398 (Version 1)
Quarter: 2025Q3

REPORT INFORMATION
  Report Type: Spontaneous
  Country: JP (occurrence: JP)
  Receive Date: 20250824
  Receipt Date: 20250824
  Transmission Date: 20251021
  Serious: Yes (Death, Other)
  Sender: GENMAB
  Company Number: JP-GENMAB-2025-02493

PATIENT
  Age: 72 Year
  Sex: Male

DRUGS (6)
  1. EPKINLY [Suspect]
     Active Substance: EPCORITAMAB-BYSP
     Indication: Diffuse large B-cell lymphoma recurrent
     Route: 058
     Dates: start: 202409, end: 202409
  2. EPKINLY [Suspect]
     Active Substance: EPCORITAMAB-BYSP
     Route: 058
     Dates: start: 202409, end: 202409
  3. EPKINLY [Suspect]
     Active Substance: EPCORITAMAB-BYSP
     Dosage: 48 MILLIGRAM, WEEKLY, UP TO CYCLE 1
     Route: 058
     Dates: start: 202409, end: 2024
  4. PREDNISOLONE [Concomitant]
     Active Substance: PREDNISOLONE
     Indication: Prophylaxis
     Dates: start: 2024, end: 2024
  5. DIPHENHYDRAMINE [Concomitant]
     Active Substance: DIPHENHYDRAMINE
     Indication: Prophylaxis
     Route: 048
     Dates: start: 2024, end: 2024
  6. ACETAMINOPHEN [Concomitant]
     Active Substance: ACETAMINOPHEN
     Indication: Prophylaxis
     Dates: start: 2024, end: 2024

REACTIONS (1)
  - Diffuse large B-cell lymphoma recurrent [Fatal]

NARRATIVE: CASE EVENT DATE: 20241001
